FAERS Safety Report 5862060-0 (Version None)
Quarter: 2008Q3

REPORT INFORMATION
  Report Type: 
  Country: None (occurrence: None)
  Receive Date: 20080827
  Receipt Date: 20080827
  Transmission Date: 20090109
  Serious: No
  Sender: FDA-Public Use
  Company Number: None

PATIENT
  Sex: Female

DRUGS (2)
  1. AMBIEN [Suspect]
     Indication: GENERALISED ANXIETY DISORDER
     Dosage: 10 MG PO
     Route: 048
     Dates: start: 20000101
  2. AMBIEN [Suspect]
     Indication: MAJOR DEPRESSION
     Dosage: 10 MG PO
     Route: 048
     Dates: start: 20000101

REACTIONS (4)
  - CONDITION AGGRAVATED [None]
  - DRUG INEFFECTIVE [None]
  - INSOMNIA [None]
  - THERAPEUTIC RESPONSE UNEXPECTED WITH DRUG SUBSTITUTION [None]
